FAERS Safety Report 8926665 (Version 1)
Quarter: 2012Q4

REPORT INFORMATION
  Report Type: 
  Country: TR (occurrence: TR)
  Receive Date: 20121127
  Receipt Date: 20121127
  Transmission Date: 20130627
  Serious: Yes (Life-Threatening, Hospitalization)
  Sender: FDA-Public Use
  Company Number: TR-ASTRAZENECA-2012SE88842

PATIENT
  Age: 28854 Day
  Sex: Male

DRUGS (1)
  1. SEROQUEL XR [Suspect]
     Indication: DEMENTIA
     Route: 048
     Dates: start: 20121120, end: 20121121

REACTIONS (2)
  - Coma [Unknown]
  - Medication error [Unknown]
